FAERS Safety Report 20852883 (Version 2)
Quarter: 2022Q2

REPORT INFORMATION
  Report Type: Report from Study
  Country: US (occurrence: US)
  Receive Date: 20220520
  Receipt Date: 20220630
  Transmission Date: 20220720
  Serious: Yes (Hospitalization, Other)
  Sender: FDA-Public Use
  Company Number: US-009507513-2205USA004237

PATIENT
  Sex: Female

DRUGS (1)
  1. KEYTRUDA [Suspect]
     Active Substance: PEMBROLIZUMAB
     Indication: Breast cancer
     Dosage: 200 MILLIGRAM
     Route: 042
     Dates: start: 202201, end: 2022

REACTIONS (6)
  - Infection [Unknown]
  - Sepsis [Unknown]
  - Hepatitis [Unknown]
  - Pancreatitis [Unknown]
  - Hypotension [Unknown]
  - Surgery [Unknown]

NARRATIVE: CASE EVENT DATE: 20220101
